FAERS Safety Report 24002927 (Version 1)
Quarter: 2024Q2

REPORT INFORMATION
  Report Type: Report from Study
  Country: US (occurrence: US)
  Receive Date: 20240624
  Receipt Date: 20240624
  Transmission Date: 20240715
  Serious: Yes (Hospitalization)
  Sender: FDA-Public Use
  Company Number: US-ABBVIE-5808328

PATIENT
  Sex: Female

DRUGS (1)
  1. SKYRIZI [Suspect]
     Active Substance: RISANKIZUMAB-RZAA
     Indication: Crohn^s disease
     Route: 058
     Dates: start: 20221021

REACTIONS (5)
  - Escherichia infection [Recovering/Resolving]
  - Sneezing [Recovering/Resolving]
  - Yawning [Recovering/Resolving]
  - Panic attack [Recovering/Resolving]
  - Multiple allergies [Recovering/Resolving]
